FAERS Safety Report 21409339 (Version 1)
Quarter: 2022Q4

REPORT INFORMATION
  Report Type: Spontaneous
  Country: US (occurrence: US)
  Receive Date: 20221004
  Receipt Date: 20221004
  Transmission Date: 20230113
  Serious: No
  Sender: FDA-Public Use
  Company Number: US-SA-SAC20220923000216

PATIENT

DRUGS (1)
  1. LARONIDASE [Suspect]
     Active Substance: LARONIDASE
     Indication: Mucopolysaccharidosis I
     Dosage: UNK UNK, QW
     Route: 042
     Dates: start: 20110525

REACTIONS (4)
  - Vein disorder [Recovering/Resolving]
  - Venous occlusion [Recovering/Resolving]
  - Spinal deformity [Recovering/Resolving]
  - Condition aggravated [Recovering/Resolving]
